FAERS Safety Report 9914584 (Version 1)
Quarter: 2014Q1

REPORT INFORMATION
  Report Type: Spontaneous
  Country: US (occurrence: US)
  Receive Date: 20140220
  Receipt Date: 20140220
  Transmission Date: 20141002
  Serious: Yes (Other)
  Sender: FDA-Public Use
  Company Number: US-PFIZER INC-2014047586

PATIENT
  Age: 50 Year
  Sex: Female
  Weight: 112.2 kg

DRUGS (3)
  1. LYRICA [Suspect]
     Indication: DIABETIC NEUROPATHY
     Dosage: 150 MG, 3X/DAY
     Dates: start: 2002
  2. SAVELLA [Concomitant]
     Indication: FIBROMYALGIA
     Dosage: 50 MG, 2X/DAY
  3. ZEGERID [Concomitant]
     Indication: ABDOMINAL DISCOMFORT
     Dosage: 30 MG, 2X/DAY

REACTIONS (3)
  - Systemic lupus erythematosus [Unknown]
  - Road traffic accident [Unknown]
  - Hepatic steatosis [Unknown]
